FAERS Safety Report 11122663 (Version 1)
Quarter: 2015Q2

REPORT INFORMATION
  Report Type: Spontaneous
  Country: US (occurrence: None)
  Receive Date: 20150518
  Receipt Date: 20150518
  Transmission Date: 20150821
  Serious: Yes (Hospitalization, Other)
  Sender: FDA-Public Use
  Company Number: None

PATIENT
  Age: 57 Year
  Sex: Female
  Weight: 122.47 kg

DRUGS (7)
  1. XANAX [Concomitant]
     Active Substance: ALPRAZOLAM
  2. LEXISCAN [Suspect]
     Active Substance: REGADENOSON
     Indication: CARDIAC STRESS TEST
     Dosage: INTO A VEIN
     Dates: start: 20150514
  3. GLYBURIDE. [Concomitant]
     Active Substance: GLYBURIDE
  4. CPAP [Concomitant]
     Active Substance: DEVICE
  5. VITAMINS B-12 [Concomitant]
  6. VITAMIN C [Concomitant]
     Active Substance: ASCORBIC ACID
  7. BRINTELLIX [Concomitant]
     Active Substance: VORTIOXETINE HYDROBROMIDE

REACTIONS (5)
  - Pain in extremity [None]
  - Blood pressure decreased [None]
  - Headache [None]
  - Cardiac arrest [None]
  - Heart rate decreased [None]

NARRATIVE: CASE EVENT DATE: 20150514
